FAERS Safety Report 10434835 (Version 2)
Quarter: 2014Q4

REPORT INFORMATION
  Report Type: Spontaneous
  Country: US (occurrence: US)
  Receive Date: 20140906
  Receipt Date: 20141013
  Transmission Date: 20150528
  Serious: No
  Sender: FDA-Public Use
  Company Number: US-009507513-1409USA002367

PATIENT
  Age: 15 Year
  Sex: Female
  Weight: 63.49 kg

DRUGS (6)
  1. NEXPLANON [Suspect]
     Active Substance: ETONOGESTREL
     Indication: MENORRHAGIA
     Dosage: 1 ROD FOR 3 YEARS, R UPPER RIGHT ARM
     Route: 059
     Dates: start: 20140109
  2. NEXPLANON [Suspect]
     Active Substance: ETONOGESTREL
     Indication: CONTRACEPTION
  3. PREDNISONE. [Concomitant]
     Active Substance: PREDNISONE
     Dosage: UNK
     Route: 048
  4. LAMOTRIGINE. [Concomitant]
     Active Substance: LAMOTRIGINE
     Dosage: UNK
  5. NEXPLANON [Suspect]
     Active Substance: ETONOGESTREL
     Indication: MENSTRUATION IRREGULAR
  6. HYDROXYZINE [Concomitant]
     Active Substance: HYDROXYZINE\HYDROXYZINE HYDROCHLORIDE
     Dosage: UNK

REACTIONS (7)
  - Abdominal pain upper [Unknown]
  - Exposure to communicable disease [Unknown]
  - Malaise [Unknown]
  - Pelvic pain [Unknown]
  - Depression [Unknown]
  - Drug administration error [Unknown]
  - Vomiting [Unknown]

NARRATIVE: CASE EVENT DATE: 20140116
